FAERS Safety Report 17011664 (Version 3)
Quarter: 2019Q4

REPORT INFORMATION
  Report Type: Report from Study
  Country: US (occurrence: US)
  Receive Date: 20191108
  Receipt Date: 20191217
  Transmission Date: 20200122
  Serious: Yes (Hospitalization, Other)
  Sender: FDA-Public Use
  Company Number: US-GLAXOSMITHKLINE-US2019TSO185891

PATIENT
  Age: 83 Year
  Sex: Female

DRUGS (7)
  1. MAGNESIUM [Concomitant]
     Active Substance: MAGNESIUM
     Indication: PRODUCT USED FOR UNKNOWN INDICATION
     Dosage: UNK, PRN
  2. ELIQUIS [Concomitant]
     Active Substance: APIXABAN
     Dosage: 2.5 UNK
  3. NIRAPARIB [Suspect]
     Active Substance: NIRAPARIB
     Indication: OVARIAN CANCER
     Dosage: 200 MG, PM WITHOUT FOOD
     Route: 048
     Dates: start: 20191007
  4. SOTALOL. [Concomitant]
     Active Substance: SOTALOL
     Indication: PRODUCT USED FOR UNKNOWN INDICATION
  5. NIRAPARIB [Suspect]
     Active Substance: NIRAPARIB
     Dosage: 200 MG, PM WITHOUT FOOD
     Route: 048
     Dates: start: 20191118, end: 20191125
  6. ELIQUIS [Concomitant]
     Active Substance: APIXABAN
     Indication: PRODUCT USED FOR UNKNOWN INDICATION
     Dosage: 5 MG
  7. NIRAPARIB [Suspect]
     Active Substance: NIRAPARIB
     Dosage: 100 MG, PM WITHOUT FOOD
     Route: 048
     Dates: start: 20191202

REACTIONS (15)
  - Dysphonia [Unknown]
  - Decreased appetite [Not Recovered/Not Resolved]
  - Fatigue [Not Recovered/Not Resolved]
  - Anxiety [Not Recovered/Not Resolved]
  - Constipation [Unknown]
  - Speech disorder [Unknown]
  - Oral mucosal blistering [Recovering/Resolving]
  - Full blood count decreased [Unknown]
  - Loss of personal independence in daily activities [Unknown]
  - Weight decreased [Not Recovered/Not Resolved]
  - Blood pressure increased [Not Recovered/Not Resolved]
  - Stomatitis [Recovering/Resolving]
  - Cough [Recovering/Resolving]
  - Atrial fibrillation [Not Recovered/Not Resolved]
  - Depression [Not Recovered/Not Resolved]

NARRATIVE: CASE EVENT DATE: 201910
